FAERS Safety Report 7000529-6 (Version None)
Quarter: 2010Q3

REPORT INFORMATION
  Report Type: 
  Country: None (occurrence: None)
  Receive Date: 20100920
  Receipt Date: 20100311
  Transmission Date: 20110219
  Serious: Yes (Other)
  Sender: FDA-Public Use
  Company Number: US-ASTRAZENECA-2009UW20734

PATIENT
  Age: 41 Year
  Sex: Female
  Weight: 112 kg

DRUGS (7)
  1. SEROQUEL [Suspect]
     Indication: BIPOLAR DISORDER
     Route: 048
     Dates: start: 20010818
  2. SEROQUEL [Suspect]
     Indication: DEPRESSION
     Route: 048
     Dates: start: 20010818
  3. SEROQUEL [Suspect]
     Route: 048
     Dates: start: 20010801, end: 20071101
  4. SEROQUEL [Suspect]
     Route: 048
     Dates: start: 20010801, end: 20071101
  5. RISPERDAL [Concomitant]
     Dates: start: 20071101
  6. DEPAKOTE [Concomitant]
     Indication: BIPOLAR DISORDER
     Dates: start: 20010101
  7. DEPAKOTE [Concomitant]
     Indication: DEPRESSION
     Dates: start: 20010101

REACTIONS (6)
  - CONVULSION [None]
  - DIABETES MELLITUS [None]
  - KETOACIDOSIS [None]
  - OBESITY [None]
  - PANCREATITIS [None]
  - TYPE 2 DIABETES MELLITUS [None]
